FAERS Safety Report 23513498 (Version 1)
Quarter: 2024Q1

REPORT INFORMATION
  Report Type: Spontaneous
  Country: US (occurrence: US)
  Receive Date: 20240212
  Receipt Date: 20240212
  Transmission Date: 20240410
  Serious: No
  Sender: FDA-Public Use
  Company Number: US-MYLANLABS-2024M1011129

PATIENT
  Sex: Female
  Weight: 49.9 kg

DRUGS (2)
  1. VENLAFAXINE [Suspect]
     Active Substance: VENLAFAXINE HYDROCHLORIDE
     Indication: Anxiety
     Dosage: 150 MILLIGRAM
     Route: 065
  2. VENLAFAXINE [Suspect]
     Active Substance: VENLAFAXINE HYDROCHLORIDE
     Indication: Androgen therapy

REACTIONS (3)
  - Vertigo [Recovered/Resolved]
  - Panic attack [Recovered/Resolved]
  - Nausea [Recovered/Resolved]
